FAERS Safety Report 8302187-7 (Version None)
Quarter: 2012Q2

REPORT INFORMATION
  Report Type: 
  Country: None (occurrence: None)
  Receive Date: 20120420
  Receipt Date: 20120417
  Transmission Date: 20120825
  Serious: Yes (Other)
  Sender: FDA-Public Use
  Company Number: JP-US-EMD SERONO, INC.-7123769

PATIENT
  Age: 26 Year
  Sex: Female

DRUGS (2)
  1. CLOMIPHENE CITRATE [Suspect]
     Indication: OVULATION INDUCTION
     Route: 048
  2. PROFASI HP [Suspect]
     Indication: OVULATION INDUCTION

REACTIONS (1)
  - ECTOPIC PREGNANCY [None]
